FAERS Safety Report 17541170 (Version 2)
Quarter: 2020Q2

REPORT INFORMATION
  Report Type: Spontaneous
  Country: US (occurrence: US)
  Receive Date: 20200313
  Receipt Date: 20200406
  Transmission Date: 20200713
  Serious: Yes (Hospitalization, Other)
  Sender: FDA-Public Use
  Company Number: US-SA-2020SA063929

PATIENT
  Age: 60 Year
  Sex: Male
  Weight: 95.3 kg

DRUGS (16)
  1. ATORVASTATIN [Concomitant]
     Active Substance: ATORVASTATIN
     Dosage: 40 MG
     Dates: start: 20191125
  2. BUTAMBEN [Concomitant]
     Active Substance: BUTAMBEN
     Dosage: DAILY DOSE 2 OTHER
     Dates: start: 20191126, end: 20191126
  3. OMEPRAZOLE. [Concomitant]
     Active Substance: OMEPRAZOLE
     Dosage: 20 MG
     Dates: start: 20180830, end: 20191124
  4. IBUPROFEN. [Concomitant]
     Active Substance: IBUPROFEN
     Dosage: 800 MG
     Dates: start: 20170621, end: 20191123
  5. TRAMADOL. [Concomitant]
     Active Substance: TRAMADOL
     Dosage: 50 MG
     Dates: start: 20120613
  6. PLAVIX [Suspect]
     Active Substance: CLOPIDOGREL BISULFATE
     Dosage: 75 MG
     Route: 048
     Dates: start: 20191126, end: 20191216
  7. ACETAMINOPHEN. [Concomitant]
     Active Substance: ACETAMINOPHEN
     Dosage: 1000 MG
     Dates: start: 20191125, end: 20191126
  8. LORAZEPAM. [Concomitant]
     Active Substance: LORAZEPAM
     Dosage: 1 MG
     Dates: start: 20191125, end: 20191125
  9. SODIUM CHLORIDE. [Concomitant]
     Active Substance: SODIUM CHLORIDE
     Dosage: DAILY DOSE 1000
     Dates: start: 20191125, end: 20191126
  10. LIDOCAINE-EPINEPHRINE [Concomitant]
     Active Substance: EPINEPHRINE\LIDOCAINE
     Dosage: 20 OTHER
     Dates: start: 20191126, end: 20191126
  11. ACETYLSALICYLIC ACID [Suspect]
     Active Substance: ASPIRIN
     Dosage: 100 MG
     Route: 065
     Dates: start: 20191125, end: 20200129
  12. TESTOSTERONE. [Concomitant]
     Active Substance: TESTOSTERONE
     Dosage: 12.5 MG
     Dates: start: 20160907, end: 20191119
  13. FENTANYL. [Concomitant]
     Active Substance: FENTANYL
     Dosage: 50 OTHER
     Dates: start: 20191126, end: 20191126
  14. MIDAZOLAM. [Concomitant]
     Active Substance: MIDAZOLAM
     Dosage: 4 MG
     Dates: start: 20191126, end: 20191126
  15. PANTOPRAZOLE [Concomitant]
     Active Substance: PANTOPRAZOLE
     Dosage: 40 MG
     Dates: start: 20191125
  16. FINASTERIDE. [Concomitant]
     Active Substance: FINASTERIDE
     Dosage: 1.25 MG
     Dates: start: 20130731

REACTIONS (2)
  - Lymphadenopathy [Recovered/Resolved]
  - Non-Hodgkin^s lymphoma [Recovered/Resolved]

NARRATIVE: CASE EVENT DATE: 20091212
